FAERS Safety Report 21592083 (Version 1)
Quarter: 2022Q4

REPORT INFORMATION
  Report Type: Spontaneous
  Country: MA (occurrence: MA)
  Receive Date: 20221114
  Receipt Date: 20221114
  Transmission Date: 20230113
  Serious: Yes (Hospitalization)
  Sender: FDA-Public Use
  Company Number: MA-SCILEX PHARMACEUTICALS INC.-2022SCX00037

PATIENT
  Age: 28 Year
  Sex: Male

DRUGS (1)
  1. LIDOCAINE [Suspect]
     Active Substance: LIDOCAINE
     Route: 065

REACTIONS (1)
  - Stevens-Johnson syndrome [Unknown]
